FAERS Safety Report 4351597-1 (Version None)
Quarter: 2004Q2

REPORT INFORMATION
  Report Type: 
  Country: None (occurrence: None)
  Receive Date: 20040429
  Receipt Date: 20040329
  Transmission Date: 20050107
  Serious: No
  Sender: FDA-Public Use
  Company Number: 2004-115081-NL

PATIENT
  Sex: Female

DRUGS (1)
  1. NUVARING [Suspect]
     Dosage: DF DAILY

REACTIONS (4)
  - DEVICE FAILURE [None]
  - FUNGAL INFECTION [None]
  - MEDICAL DEVICE DISCOMFORT [None]
  - URINARY TRACT INFECTION [None]
